FAERS Safety Report 13857464 (Version 1)
Quarter: 2017Q3

REPORT INFORMATION
  Report Type: Report from Study
  Country: None (occurrence: US)
  Receive Date: 20170810
  Receipt Date: 20170810
  Transmission Date: 20171127
  Serious: Yes (Other)
  Sender: FDA-Public Use
  Company Number: US-ABBVIE-17P-163-2060603-00

PATIENT
  Sex: Female

DRUGS (4)
  1. LUPRON DEPOT [Suspect]
     Active Substance: LEUPROLIDE ACETATE
     Indication: ENDOMETRIOSIS
     Route: 065
     Dates: start: 201201, end: 201505
  2. LUPRON DEPOT [Suspect]
     Active Substance: LEUPROLIDE ACETATE
     Indication: UTERINE LEIOMYOMA
  3. NORETHINDRONE ACETATE. [Concomitant]
     Active Substance: NORETHINDRONE ACETATE
     Indication: PRODUCT USED FOR UNKNOWN INDICATION
     Route: 048
  4. SERRAPEPTASE [Concomitant]
     Active Substance: SERRAPEPTASE
     Indication: NUTRITIONAL SUPPLEMENTATION
     Route: 048

REACTIONS (9)
  - Fall [Unknown]
  - Road traffic accident [Unknown]
  - Postoperative adhesion [Unknown]
  - Spinal cord injury [Unknown]
  - Back pain [Not Recovered/Not Resolved]
  - Intervertebral disc protrusion [Unknown]
  - Menstruation delayed [Recovered/Resolved]
  - Bone density decreased [Recovering/Resolving]
  - Pelvic pain [Not Recovered/Not Resolved]

NARRATIVE: CASE EVENT DATE: 2012
